FAERS Safety Report 4729350-6 (Version None)
Quarter: 2005Q3

REPORT INFORMATION
  Report Type: 
  Country: None (occurrence: None)
  Receive Date: 20050729
  Receipt Date: 20050511
  Transmission Date: 20060218
  Serious: Yes (Death, Hospitalization)
  Sender: FDA-Public Use
  Company Number: BR-ABBOTT-05P-020-0300332-00

PATIENT
  Sex: Male
  Weight: 72 kg

DRUGS (42)
  1. KALETRA [Suspect]
     Indication: HIV TEST POSITIVE
     Route: 048
     Dates: start: 20040705, end: 20050412
  2. KALETRA [Suspect]
     Dates: start: 20030728, end: 20040704
  3. CAPRAVIRINE [Suspect]
     Indication: HIV TEST POSITIVE
     Route: 048
     Dates: start: 20040705, end: 20050412
  4. CAPRAVIRINE [Suspect]
     Dates: start: 20030804, end: 20040704
  5. TENOFOVIR [Suspect]
     Indication: HIV TEST POSITIVE
     Route: 048
     Dates: start: 20040705, end: 20050412
  6. TENOFOVIR [Suspect]
     Dates: start: 20030728, end: 20040704
  7. LAMIVUDINE [Suspect]
     Indication: HIV TEST POSITIVE
     Route: 048
     Dates: start: 20040705, end: 20050412
  8. LAMIVUDINE [Suspect]
     Dates: start: 20030728, end: 20040704
  9. DIDANOSINE [Suspect]
     Indication: HIV TEST POSITIVE
     Route: 048
     Dates: start: 20040705, end: 20050412
  10. DIDANOSINE [Suspect]
     Dates: start: 20030728, end: 20040704
  11. GEMFIBROZIL [Concomitant]
     Indication: DRUG USE FOR UNKNOWN INDICATION
     Route: 048
     Dates: start: 20040830, end: 20050412
  12. ACETAMINOPHEN [Concomitant]
     Indication: DRUG USE FOR UNKNOWN INDICATION
     Route: 048
     Dates: start: 20040108, end: 20050412
  13. GLUCOSE [Concomitant]
     Indication: DRUG USE FOR UNKNOWN INDICATION
     Route: 042
     Dates: start: 20050415, end: 20050421
  14. GLUCOSE [Concomitant]
     Route: 042
     Dates: start: 20050415, end: 20050421
  15. SODIUM CHLORIDE [Concomitant]
     Indication: DRUG USE FOR UNKNOWN INDICATION
     Route: 042
     Dates: start: 20050415, end: 20050421
  16. POTASSIUM CHLORIDE [Concomitant]
     Indication: DRUG USE FOR UNKNOWN INDICATION
     Route: 042
     Dates: start: 20050415, end: 20050421
  17. ALBUMIN (HUMAN) [Concomitant]
     Indication: DRUG USE FOR UNKNOWN INDICATION
     Route: 042
     Dates: start: 20050415, end: 20050421
  18. SPIRONOLACTONE [Concomitant]
     Indication: DRUG USE FOR UNKNOWN INDICATION
     Route: 048
     Dates: start: 20050415, end: 20050421
  19. BACTRIM [Concomitant]
     Indication: DRUG USE FOR UNKNOWN INDICATION
     Route: 042
     Dates: start: 20050415, end: 20050415
  20. PHYTONADIONE [Concomitant]
     Indication: DRUG USE FOR UNKNOWN INDICATION
     Route: 042
     Dates: start: 20050415, end: 20050420
  21. PHYTONADIONE [Concomitant]
     Route: 030
     Dates: start: 20050415, end: 20050420
  22. METAMIZOLE SODIUM [Concomitant]
     Indication: DRUG USE FOR UNKNOWN INDICATION
     Route: 042
     Dates: start: 20050415, end: 20050421
  23. RANITIDINE [Concomitant]
     Indication: DRUG USE FOR UNKNOWN INDICATION
     Dates: start: 20050416, end: 20050421
  24. SPIRONOLACTONE [Concomitant]
     Route: 048
     Dates: start: 20050416, end: 20050419
  25. FUROSEMIDE [Concomitant]
     Indication: DRUG USE FOR UNKNOWN INDICATION
     Route: 048
     Dates: start: 20050416, end: 20050416
  26. FUROSEMIDE [Concomitant]
     Route: 048
     Dates: start: 20050418, end: 20050419
  27. FUROSEMIDE [Concomitant]
     Route: 042
     Dates: start: 20050415, end: 20050421
  28. MINERAL OIL [Concomitant]
     Indication: DRUG USE FOR UNKNOWN INDICATION
     Route: 048
     Dates: start: 20050418, end: 20050420
  29. HYOSCINE HBR HYT [Concomitant]
     Indication: DRUG USE FOR UNKNOWN INDICATION
     Route: 042
     Dates: start: 20050418, end: 20050418
  30. HYOSCINE HBR HYT [Concomitant]
     Indication: DRUG USE FOR UNKNOWN INDICATION
     Route: 042
     Dates: start: 20050419, end: 20050421
  31. FISIOLOGIC SOLUTION [Concomitant]
     Indication: DRUG USE FOR UNKNOWN INDICATION
     Route: 042
     Dates: start: 20050418, end: 20050421
  32. LIDOCAINE [Concomitant]
     Indication: HAEMORRHOIDS
     Route: 061
     Dates: start: 20050412, end: 20050412
  33. LIDOCAINE [Concomitant]
     Dates: start: 20050419
  34. PLASMA [Concomitant]
     Indication: HAEMODIALYSIS
     Route: 042
     Dates: start: 20040421, end: 20040421
  35. METRONIDAZOLE [Concomitant]
     Indication: DRUG USE FOR UNKNOWN INDICATION
     Route: 048
     Dates: start: 20050420, end: 20050420
  36. H2C03 [Concomitant]
     Indication: HAEMODIALYSIS
     Route: 042
     Dates: start: 20050421, end: 20050421
  37. TYLEX [Concomitant]
     Indication: PAIN
     Route: 048
     Dates: start: 20050420, end: 20050420
  38. PETHIDINE HYDROCHLORIDE [Concomitant]
     Indication: PAIN
     Route: 042
     Dates: start: 20050420, end: 20050420
  39. FLUCONAZOLE [Concomitant]
     Indication: DRUG USE FOR UNKNOWN INDICATION
     Route: 042
     Dates: start: 20050421, end: 20050421
  40. HEPARIN-FRACTION, SODIUM SALT [Concomitant]
     Indication: HAEMODIALYSIS
     Route: 042
     Dates: start: 20050421, end: 20050421
  41. PETHIDINE [Concomitant]
     Indication: DRUG USE FOR UNKNOWN INDICATION
     Route: 050
     Dates: start: 20040412, end: 20040412
  42. LIDOCAINE [Concomitant]
     Indication: DRUG USE FOR UNKNOWN INDICATION
     Dates: start: 20050412, end: 20050412

REACTIONS (6)
  - HEPATIC FAILURE [None]
  - HEPATITIS TOXIC [None]
  - HYPERTROPHY [None]
  - MULTI-ORGAN FAILURE [None]
  - RENAL FAILURE [None]
  - TUBERCULOSIS [None]
